FAERS Safety Report 9711795 (Version 1)
Quarter: 2013Q4

REPORT INFORMATION
  Report Type: Spontaneous
  Country: US (occurrence: US)
  Receive Date: 20131126
  Receipt Date: 20131126
  Transmission Date: 20140711
  Serious: No
  Sender: FDA-Public Use
  Company Number: US-BRISTOL-MYERS SQUIBB COMPANY-19105238

PATIENT
  Age: 64 Year
  Sex: Male
  Weight: 103.4 kg

DRUGS (4)
  1. BYDUREON [Suspect]
     Indication: TYPE 2 DIABETES MELLITUS
     Dosage: STARTED NINE WEEKS AGO.
  2. METFORMIN HCL [Suspect]
  3. GLIMEPIRIDE [Suspect]
  4. PRILOSEC [Concomitant]

REACTIONS (4)
  - Blood glucose increased [Not Recovered/Not Resolved]
  - Weight decreased [Unknown]
  - Injection site swelling [Recovering/Resolving]
  - Injection site pruritus [Recovering/Resolving]
